FAERS Safety Report 4655113-6 (Version None)
Quarter: 2005Q2

REPORT INFORMATION
  Report Type: 
  Country: None (occurrence: None)
  Receive Date: 20050506
  Receipt Date: 20050425
  Transmission Date: 20051028
  Serious: Yes (Hospitalization)
  Sender: FDA-Public Use
  Company Number: CA-JNJFOC-20031103830

PATIENT
  Sex: Female
  Weight: 54.43 kg

DRUGS (8)
  1. DURAGESIC-100 [Suspect]
     Route: 062
  2. DURAGESIC-100 [Suspect]
     Route: 062
  3. DURAGESIC-100 [Suspect]
     Route: 062
  4. DURAGESIC-100 [Suspect]
     Route: 062
  5. DEMEROL [Concomitant]
     Indication: PAIN
     Route: 049
  6. LUVOX [Concomitant]
     Indication: DEPRESSION
     Route: 049
  7. DESIPRAMIDE HCL [Concomitant]
     Indication: DEPRESSION
     Dosage: AT BEDTIME
     Route: 049
  8. THYROXINE [Concomitant]
     Indication: HYPOTHYROIDISM
     Route: 049

REACTIONS (9)
  - CONSTIPATION [None]
  - DIZZINESS [None]
  - OSTEOARTHRITIS [None]
  - OSTEONECROSIS [None]
  - PNEUMONIA [None]
  - RENAL FAILURE ACUTE [None]
  - SEDATION [None]
  - STAPHYLOCOCCAL SEPSIS [None]
  - URINARY RETENTION [None]
